FAERS Safety Report 6038701-4 (Version None)
Quarter: 2009Q1

REPORT INFORMATION
  Report Type: 
  Country: None (occurrence: None)
  Receive Date: 20090115
  Receipt Date: 20081125
  Transmission Date: 20090719
  Serious: No
  Sender: FDA-Public Use
  Company Number: US-BAYER-200814597BCC

PATIENT
  Age: 73 Year
  Sex: Female
  Weight: 57 kg

DRUGS (7)
  1. ALEVE (CAPLET) [Suspect]
     Indication: ARTHRALGIA
     Dosage: TOTAL DAILY DOSE: 440 MG  UNIT DOSE: 220 MG
     Dates: start: 20081105
  2. ONE SOURCE DAILY 50 PLUS VITAMINS [Concomitant]
  3. OYSTER SHELL CALCIUM PLUS VITAMIN D [Concomitant]
  4. HYDROCHLOROTHIAZIDE [Concomitant]
  5. LOVENOX [Concomitant]
     Dates: start: 20080909, end: 20080922
  6. HYDROCODONE BITARTRATE [Concomitant]
  7. EQUATE EXTRA STRENGTH TYLENOL [Concomitant]
     Dosage: TOTAL DAILY DOSE: 1 DF  UNIT DOSE: 1 DF

REACTIONS (1)
  - CONTUSION [None]
